FAERS Safety Report 10648779 (Version 4)
Quarter: 2015Q3

REPORT INFORMATION
  Report Type: Report from Study
  Country: US (occurrence: US)
  Receive Date: 20141212
  Receipt Date: 20150911
  Transmission Date: 20151125
  Serious: Yes (Other)
  Sender: FDA-Public Use
  Company Number: US-SA-2013SA123072

PATIENT
  Age: 48 Year
  Sex: Female

DRUGS (1)
  1. AUBAGIO [Suspect]
     Active Substance: TERIFLUNOMIDE
     Indication: MULTIPLE SCLEROSIS
     Route: 048
     Dates: start: 20131120, end: 20150601

REACTIONS (13)
  - Wheelchair user [Unknown]
  - Musculoskeletal pain [Not Recovered/Not Resolved]
  - Hypersomnia [Unknown]
  - Burning sensation [Unknown]
  - Drug dose omission [Unknown]
  - Poor quality sleep [Recovered/Resolved]
  - Alopecia [Unknown]
  - Abnormal dreams [Recovered/Resolved]
  - Rash [Not Recovered/Not Resolved]
  - Gait disturbance [Recovering/Resolving]
  - Pruritus [Not Recovered/Not Resolved]
  - Herpes zoster [Unknown]
  - Nightmare [Unknown]

NARRATIVE: CASE EVENT DATE: 201311
